FAERS Safety Report 14750012 (Version 2)
Quarter: 2018Q2

REPORT INFORMATION
  Report Type: Spontaneous
  Country: FR (occurrence: FR)
  Receive Date: 20180412
  Receipt Date: 20180525
  Transmission Date: 20180711
  Serious: Yes (Life-Threatening, Hospitalization, Other)
  Sender: FDA-Public Use
  Company Number: FR-SUN PHARMACEUTICAL INDUSTRIES LTD-2018RR-169776

PATIENT
  Age: 26 Year
  Sex: Female
  Weight: 56 kg

DRUGS (9)
  1. PANTOPRAZOLE [Suspect]
     Active Substance: PANTOPRAZOLE
     Indication: PRODUCT USED FOR UNKNOWN INDICATION
     Dosage: UNK
     Route: 042
     Dates: start: 201509
  2. SOLIRIS [Suspect]
     Active Substance: ECULIZUMAB
     Dosage: 900 MG, QW
     Route: 042
     Dates: start: 20151015, end: 20151106
  3. ROVAMYCIN [Suspect]
     Active Substance: SPIRAMYCIN
     Indication: INFECTION
     Dosage: UNK, TID ()
     Route: 065
     Dates: start: 20151030, end: 20151104
  4. PANTOPRAZOLE [Suspect]
     Active Substance: PANTOPRAZOLE
     Dosage: 40 MG, QD
     Route: 042
     Dates: start: 20151101, end: 20151115
  5. ORACILLIN /00001802/ [Suspect]
     Active Substance: PENICILLIN V POTASSIUM
     Indication: INFECTION
     Dosage: 2000000 IU, QD ()
     Route: 065
     Dates: start: 20151019, end: 20151105
  6. SOLIRIS [Suspect]
     Active Substance: ECULIZUMAB
     Indication: HAEMOLYTIC URAEMIC SYNDROME
     Dosage: 900 MG, QW
     Route: 042
     Dates: start: 20151015, end: 20151106
  7. ESIDREX [Suspect]
     Active Substance: HYDROCHLOROTHIAZIDE
     Indication: PRODUCT USED FOR UNKNOWN INDICATION
     Dosage: UNK, BID ()
     Route: 065
     Dates: start: 20151016, end: 20151103
  8. SPECIAFOLDINE [Concomitant]
     Active Substance: FOLIC ACID
     Indication: PRODUCT USED FOR UNKNOWN INDICATION
     Dosage: UNK ()
     Route: 065
  9. ALPRAZOLAM. [Suspect]
     Active Substance: ALPRAZOLAM
     Indication: PRODUCT USED FOR UNKNOWN INDICATION
     Dosage: UNK, QD ()
     Route: 065
     Dates: start: 20151023, end: 20151105

REACTIONS (28)
  - Cholestasis [Recovering/Resolving]
  - Oesophagitis [Unknown]
  - Pyrexia [Recovered/Resolved]
  - Transaminases increased [Unknown]
  - Cough [Recovered/Resolved]
  - Pancreatic disorder [Unknown]
  - Petechiae [Recovering/Resolving]
  - Lung disorder [Unknown]
  - Chest pain [Recovered/Resolved]
  - Chest pain [Unknown]
  - Inappropriate schedule of drug administration [Unknown]
  - Mitral valve incompetence [Unknown]
  - Device related infection [Unknown]
  - Dyspnoea [Unknown]
  - Skin burning sensation [Recovering/Resolving]
  - Drug reaction with eosinophilia and systemic symptoms [Recovering/Resolving]
  - Lung infection [Unknown]
  - Infection [Unknown]
  - Burning sensation [Recovered/Resolved]
  - Tricuspid valve disease [Unknown]
  - Drug eruption [Unknown]
  - Acute kidney injury [Unknown]
  - Skin disorder [Recovering/Resolving]
  - Haemoptysis [Recovered/Resolved]
  - Serum ferritin abnormal [Unknown]
  - Eosinophilia [Recovering/Resolving]
  - Cell death [Recovering/Resolving]
  - Hepatocellular injury [Unknown]

NARRATIVE: CASE EVENT DATE: 20151015
